FAERS Safety Report 25112263 (Version 1)
Quarter: 2025Q1

REPORT INFORMATION
  Report Type: Report from Study
  Country: US (occurrence: US)
  Receive Date: 20250324
  Receipt Date: 20250324
  Transmission Date: 20250408
  Serious: No
  Sender: ACADIA PHARMACEUTICALS
  Company Number: US-ACADIA PHARMACEUTICALS INC.-ACA-2025-PIM-003176

PATIENT
  Age: 78 Year
  Sex: Male

DRUGS (13)
  1. NUPLAZID [Suspect]
     Active Substance: PIMAVANSERIN TARTRATE
     Indication: Parkinson^s disease
     Dosage: 34 MILLIGRAM, QD
     Route: 048
     Dates: start: 20231027
  2. NUPLAZID [Suspect]
     Active Substance: PIMAVANSERIN TARTRATE
     Indication: Hallucination
  3. CIALIS [Concomitant]
     Active Substance: TADALAFIL
  4. FUROSEMIDE [Concomitant]
     Active Substance: FUROSEMIDE
  5. CREXONT [Concomitant]
     Active Substance: CARBIDOPA\LEVODOPA
  6. DILTIAZEM [Concomitant]
     Active Substance: DILTIAZEM
  7. ESCITALOPRAM [Concomitant]
     Active Substance: ESCITALOPRAM OXALATE
  8. GEMTESA [Concomitant]
     Active Substance: VIBEGRON
  9. METOPROLOL SUCCINATE [Concomitant]
     Active Substance: METOPROLOL SUCCINATE
  10. PRAVASTATIN [Concomitant]
     Active Substance: PRAVASTATIN
  11. RIVASTIGMINE [Concomitant]
     Active Substance: RIVASTIGMINE
  12. VALSARTAN [Concomitant]
     Active Substance: VALSARTAN
  13. XARELTO [Concomitant]
     Active Substance: RIVAROXABAN

REACTIONS (1)
  - Peripheral swelling [Not Recovered/Not Resolved]

NARRATIVE: CASE EVENT DATE: 20250201
